FAERS Safety Report 9116634 (Version 1)
Quarter: 2013Q1

REPORT INFORMATION
  Report Type: Spontaneous
  Country: US (occurrence: US)
  Receive Date: 20130225
  Receipt Date: 20130225
  Transmission Date: 20140127
  Serious: Yes (Hospitalization)
  Sender: FDA-Public Use
  Company Number: PHEH2013US004477

PATIENT
  Sex: Female

DRUGS (7)
  1. TEKTURNA [Suspect]
     Route: 048
  2. NORVASC [Suspect]
  3. DIOVAN [Concomitant]
     Dosage: 320 MG, UNK
  4. HYDROCHLOROTHIAZIDE [Concomitant]
  5. CALCIUM [Concomitant]
  6. MULTIVITAMIN//VITAMINS NOS [Concomitant]
  7. LIPITOR [Concomitant]

REACTIONS (2)
  - Intracranial pressure increased [Unknown]
  - Blood pressure inadequately controlled [Unknown]
